FAERS Safety Report 7336461-8 (Version None)
Quarter: 2011Q1

REPORT INFORMATION
  Report Type: 
  Country: None (occurrence: None)
  Receive Date: 20110307
  Receipt Date: 20110224
  Transmission Date: 20110831
  Serious: Yes (Other)
  Sender: FDA-Public Use
  Company Number: US-BAYER-2011-017712

PATIENT

DRUGS (3)
  1. ASPIRIN [Suspect]
     Indication: PLATELET AGGREGATION INHIBITION
     Dosage: 81 MG, UNK
  2. ASPIRIN [Interacting]
     Indication: INFLAMMATION
  3. PLAVIX [Interacting]
     Indication: PLATELET AGGREGATION INHIBITION
     Dosage: UNK

REACTIONS (3)
  - C-REACTIVE PROTEIN INCREASED [None]
  - CONTUSION [None]
  - HAEMORRHAGE [None]
